FAERS Safety Report 6942645-0 (Version None)
Quarter: 2010Q3

REPORT INFORMATION
  Report Type: 
  Country: None (occurrence: None)
  Receive Date: 20100826
  Receipt Date: 20100817
  Transmission Date: 20110219
  Serious: Yes (Hospitalization)
  Sender: FDA-Public Use
  Company Number: US-ASTRAZENECA-2010SE38569

PATIENT
  Age: 67 Year
  Sex: Female
  Weight: 66.2 kg

DRUGS (2)
  1. SYMBICORT [Suspect]
     Indication: EMPHYSEMA
     Dosage: 640 MCG
     Route: 055
  2. COMBIVENT [Concomitant]
     Indication: EMPHYSEMA

REACTIONS (1)
  - APPENDICECTOMY [None]
